FAERS Safety Report 9577539 (Version 1)
Quarter: 2013Q4

REPORT INFORMATION
  Report Type: Spontaneous
  Country: US (occurrence: US)
  Receive Date: 20131001
  Receipt Date: 20131001
  Transmission Date: 20140711
  Serious: No
  Sender: FDA-Public Use
  Company Number: US-AMGEN-USASP2013008392

PATIENT
  Age: 45 Year
  Sex: Female

DRUGS (4)
  1. ENBREL [Suspect]
     Indication: RHEUMATOID ARTHRITIS
     Dosage: 50 MG/ML, QWK
     Route: 058
  2. METHOTREXATE [Concomitant]
     Dosage: 2.5 MG, UNK
     Route: 048
  3. NABUMETONE [Concomitant]
     Dosage: 500 MG, UNK
     Route: 048
  4. FOLIC ACID [Concomitant]
     Dosage: 20 MG, UNK
     Route: 048

REACTIONS (2)
  - Sinus congestion [Unknown]
  - Lower respiratory tract infection [Unknown]
